FAERS Safety Report 8551448-5 (Version None)
Quarter: 2012Q3

REPORT INFORMATION
  Report Type: 
  Country: None (occurrence: None)
  Receive Date: 20120730
  Receipt Date: 20111214
  Transmission Date: 20120928
  Serious: No
  Sender: FDA-Public Use
  Company Number: US-ALLERGAN-1116389US

PATIENT
  Age: 36 Year
  Sex: Female

DRUGS (2)
  1. LATISSE [Suspect]
     Indication: HYPOTRICHOSIS
     Dosage: 2 GTT, QHS
     Route: 061
     Dates: start: 20111201, end: 20111208
  2. LATISSE [Suspect]
     Dosage: 2 GTT, QPM
     Route: 061
     Dates: end: 20111212

REACTIONS (8)
  - EYE DISCHARGE [None]
  - EYE SWELLING [None]
  - EYE INFECTION [None]
  - EYE PAIN [None]
  - EYELID PTOSIS [None]
  - ABNORMAL SENSATION IN EYE [None]
  - SCLERAL HYPERAEMIA [None]
  - EYE PRURITUS [None]
